FAERS Safety Report 7901276-6 (Version None)
Quarter: 2011Q4

REPORT INFORMATION
  Report Type: 
  Country: None (occurrence: None)
  Receive Date: 20111108
  Receipt Date: 20111102
  Transmission Date: 20120403
  Serious: Yes (Life-Threatening, Hospitalization, Disabling, Other)
  Sender: FDA-Public Use
  Company Number: PHHY2011MX097734

PATIENT
  Sex: Male

DRUGS (1)
  1. ONBREZ [Suspect]
     Dosage: 1 DF, QD

REACTIONS (5)
  - GAIT DISTURBANCE [None]
  - RENAL IMPAIRMENT [None]
  - CHEST PAIN [None]
  - CARDIAC FAILURE [None]
  - ASPHYXIA [None]
